FAERS Safety Report 7584419-6 (Version None)
Quarter: 2011Q2

REPORT INFORMATION
  Report Type: 
  Country: None (occurrence: None)
  Receive Date: 20110630
  Receipt Date: 20110623
  Transmission Date: 20111010
  Serious: Yes (Hospitalization)
  Sender: FDA-Public Use
  Company Number: US-B.I. PHARMACEUTICALS,INC./RIDGEFIELD-2011-BP-09953BP

PATIENT
  Age: 72 Year
  Sex: Female

DRUGS (10)
  1. PRADAXA [Suspect]
     Indication: ATRIAL FIBRILLATION
     Dosage: 300 MG
     Route: 048
     Dates: start: 20110322
  2. PROTONIX [Concomitant]
  3. DITROPAN [Concomitant]
  4. LISINOPRIL [Concomitant]
  5. CALCIUM CARBONATE [Concomitant]
  6. METOPROLOL TARTRATE [Concomitant]
  7. VITAMIN B-12 [Concomitant]
  8. DIGOXIN [Concomitant]
  9. LASIX [Concomitant]
  10. LIPITOR [Concomitant]

REACTIONS (3)
  - RESPIRATORY FAILURE [None]
  - ANAEMIA [None]
  - GASTROINTESTINAL HAEMORRHAGE [None]
